FAERS Safety Report 17794019 (Version 1)
Quarter: 2020Q2

REPORT INFORMATION
  Report Type: Spontaneous
  Country: DE (occurrence: DE)
  Receive Date: 20200515
  Receipt Date: 20200515
  Transmission Date: 20200714
  Serious: Yes (Death, Hospitalization)
  Sender: FDA-Public Use
  Company Number: DE-MYLANLABS-2020M1047505

PATIENT
  Age: 56 Year
  Sex: Female

DRUGS (3)
  1. IVERMECTIN. [Concomitant]
     Active Substance: IVERMECTIN
     Indication: STRONGYLOIDIASIS
     Dosage: 200 MICROGRAM/KILOGRAM
     Route: 048
  2. PREDNISOLONE. [Suspect]
     Active Substance: PREDNISOLONE
     Indication: CHRONIC OBSTRUCTIVE PULMONARY DISEASE
     Dosage: 40 MILLIGRAM, QD
     Route: 048
  3. ALBENDAZOLE. [Concomitant]
     Active Substance: ALBENDAZOLE
     Indication: STRONGYLOIDIASIS
     Dosage: 400 MILLIGRAM, 0.5 DAY
     Route: 065

REACTIONS (6)
  - Septic shock [Fatal]
  - Drug ineffective [Unknown]
  - Metabolic acidosis [Unknown]
  - Escherichia bacteraemia [Fatal]
  - Condition aggravated [Fatal]
  - Strongyloidiasis [Fatal]
